FAERS Safety Report 13230513 (Version 1)
Quarter: 2017Q1

REPORT INFORMATION
  Report Type: Spontaneous
  Country: FR (occurrence: FR)
  Receive Date: 20170214
  Receipt Date: 20170214
  Transmission Date: 20170428
  Serious: Yes (Hospitalization)
  Sender: FDA-Public Use
  Company Number: FR-PFIZER INC-2017060114

PATIENT
  Age: 79 Year
  Sex: Female

DRUGS (11)
  1. LASILIX /00032601/ [Concomitant]
     Active Substance: FUROSEMIDE
     Dosage: 20 MG, 2X/DAY IN THE MORNING AND AT NOON
     Route: 048
  2. INSPRA [Suspect]
     Active Substance: EPLERENONE
     Dosage: 25 MG, EVERY TWO DAYS
     Route: 048
     Dates: start: 201606
  3. COVERSYL /00790703/ [Suspect]
     Active Substance: PERINDOPRIL
     Dosage: 2.5 MG, 1X/DAY IN THE MORNING
     Route: 048
     Dates: end: 201606
  4. DUOPLAVIN [Concomitant]
     Active Substance: ASPIRIN\CLOPIDOGREL
     Dosage: 1 DF, 1X/DAY AT NOON
     Route: 048
  5. KALEORID LP [Concomitant]
     Active Substance: POTASSIUM CHLORIDE
     Dosage: 1000 MG, 2X/DAY IN THE MORNING AND AT NOON
     Route: 048
  6. INSPRA [Suspect]
     Active Substance: EPLERENONE
     Dosage: 25 MG, 1X/DAY AT NOON
     Route: 048
     Dates: end: 201606
  7. LOVENOX [Concomitant]
     Active Substance: ENOXAPARIN SODIUM
     Dosage: 5000 IU, 2X/DAY
     Route: 058
     Dates: end: 20160602
  8. PROCORALAN [Concomitant]
     Active Substance: IVABRADINE
     Dosage: 5 MG, 2X/DAY IN THE MORNING AND IN THE EVENING
     Route: 048
  9. BISOPROLOL HEMIFUMARATE [Concomitant]
     Active Substance: BISOPROLOL FUMARATE
     Dosage: 2.5 MG, 1X/DAY IN THE MORNING
     Route: 048
  10. TAHOR [Concomitant]
     Active Substance: ATORVASTATIN CALCIUM
     Dosage: 20 MG, 1X/DAY IN THE EVENING
     Route: 048
  11. OMEPRAZOLE. [Concomitant]
     Active Substance: OMEPRAZOLE
     Dosage: 20 MG, 1X/DAY IN THE EVENING
     Route: 048

REACTIONS (1)
  - Acute kidney injury [Recovered/Resolved]

NARRATIVE: CASE EVENT DATE: 201606
